FAERS Safety Report 5039447-1 (Version None)
Quarter: 2006Q2

REPORT INFORMATION
  Report Type: 
  Country: None (occurrence: None)
  Receive Date: 20060629
  Receipt Date: 20060623
  Transmission Date: 20061013
  Serious: Yes (Other)
  Sender: FDA-Public Use
  Company Number: US-GILEAD-2006-0009782

PATIENT
  Sex: Female

DRUGS (7)
  1. HEPSERA [Suspect]
     Indication: HEPATITIS B
     Route: 048
     Dates: start: 20060110, end: 20060501
  2. INTRON A [Suspect]
     Indication: HEPATITIS C
     Route: 058
     Dates: start: 20050711, end: 20060110
  3. INTRON A [Suspect]
     Indication: HEPATITIS B
  4. ATENOLOL [Concomitant]
     Route: 048
  5. DOXIDAN [Concomitant]
     Dosage: 30-100 MG
     Route: 048
  6. LASIX [Concomitant]
     Route: 048
  7. POTASSIUM CHLORIDE [Concomitant]
     Route: 048

REACTIONS (5)
  - ANXIETY [None]
  - DEPRESSION [None]
  - MEMORY IMPAIRMENT [None]
  - ROAD TRAFFIC ACCIDENT [None]
  - THINKING ABNORMAL [None]
